FAERS Safety Report 5486839-2 (Version None)
Quarter: 2007Q4

REPORT INFORMATION
  Report Type: 
  Country: None (occurrence: None)
  Receive Date: 20071012
  Receipt Date: 20071012
  Transmission Date: 20080405
  Serious: Yes (Life-Threatening, Hospitalization)
  Sender: FDA-Public Use
  Company Number: None

PATIENT
  Age: 47 Year
  Sex: Male
  Weight: 83.0083 kg

DRUGS (2)
  1. QUININE SULFATE.325MG CAP. EXCELLIUM PHARM [Suspect]
     Indication: MUSCLE SPASMS
     Dosage: 1-325 MG CAP AS  NEEDED CRAMPS
     Dates: start: 20060401
  2. QUININE SULFATE.325MG CAP. EXCELLIUM PHARM [Suspect]
     Indication: MUSCLE SPASMS
     Dosage: 1-325 MG CAP AS  NEEDED CRAMPS
     Dates: start: 20070401

REACTIONS (12)
  - ANAL HAEMORRHAGE [None]
  - BLOOD URINE PRESENT [None]
  - CONVULSION [None]
  - EPISTAXIS [None]
  - EYE HAEMORRHAGE [None]
  - GINGIVAL BLEEDING [None]
  - HAEMATEMESIS [None]
  - HAEMOPTYSIS [None]
  - HAEMORRHAGE [None]
  - PLATELET COUNT DECREASED [None]
  - PURPURA [None]
  - RECTAL HAEMORRHAGE [None]
